FAERS Safety Report 24278464 (Version 1)
Quarter: 2024Q3

REPORT INFORMATION
  Report Type: Spontaneous
  Country: US (occurrence: None)
  Receive Date: 20240830
  Receipt Date: 20240830
  Transmission Date: 20241017
  Serious: Yes (Hospitalization, Disabling)
  Sender: Public
  Company Number: None

PATIENT
  Age: 88 Year
  Sex: Female
  Weight: 75.3 kg

DRUGS (9)
  1. EYLEA [Suspect]
     Active Substance: AFLIBERCEPT
     Indication: Macular degeneration
     Dosage: 1 EYE INJECTION    INJECTION EYE
     Route: 050
  2. LEVOTHYROXINE [Concomitant]
     Active Substance: LEVOTHYROXINE\LEVOTHYROXINE SODIUM
  3. APRAVASTATIN [Concomitant]
  4. BENICAR [Concomitant]
     Active Substance: OLMESARTAN MEDOXOMIL
  5. ATENOLOL [Concomitant]
     Active Substance: ATENOLOL
  6. VITAMINS [Concomitant]
     Active Substance: VITAMINS
  7. VITAMIN D [Concomitant]
     Active Substance: VITAMIN D NOS
  8. OQ10 [Concomitant]
  9. PRESERVISION ARED 2 [Concomitant]

REACTIONS (2)
  - Blindness [None]
  - Eye infection [None]

NARRATIVE: CASE EVENT DATE: 20240801
